FAERS Safety Report 5530188-0 (Version None)
Quarter: 2007Q3

REPORT INFORMATION
  Report Type: 
  Country: None (occurrence: None)
  Receive Date: 20070831
  Receipt Date: 20070601
  Transmission Date: 20080115
  Serious: Yes (Other)
  Sender: FDA-Public Use
  Company Number: 014025

PATIENT
  Age: 35 Year
  Sex: Female
  Weight: 47.6 kg

DRUGS (2)
  1. PLAN B [Suspect]
     Indication: CONTRACEPTION
     Dosage: 1 TABLET, ORAL
     Route: 048
     Dates: start: 20070521, end: 20070522
  2. MOTRIN [Concomitant]

REACTIONS (1)
  - MENSTRUATION IRREGULAR [None]
